FAERS Safety Report 11737137 (Version 1)
Quarter: 2015Q4

REPORT INFORMATION
  Report Type: Spontaneous
  Country: US (occurrence: US)
  Receive Date: 20151110
  Receipt Date: 20151110
  Transmission Date: 20160304
  Serious: No
  Sender: FDA-Public Use
  Company Number: US-ELI_LILLY_AND_COMPANY-US201112005501

PATIENT
  Age: 87 Year
  Sex: Female

DRUGS (3)
  1. FORTEO [Suspect]
     Active Substance: TERIPARATIDE
     Indication: OSTEOPOROSIS
     Dosage: 20 UG, QD
     Route: 065
     Dates: end: 201111
  2. DIGOXIN. [Concomitant]
     Active Substance: DIGOXIN
  3. FORTEO [Suspect]
     Active Substance: TERIPARATIDE
     Dosage: 20 UG, QD
     Route: 065
     Dates: start: 20120127, end: 20120616

REACTIONS (11)
  - Pain in extremity [Recovered/Resolved]
  - Asthenia [Unknown]
  - Atrial fibrillation [Unknown]
  - Back pain [Unknown]
  - Arthralgia [Recovered/Resolved]
  - Arthralgia [Unknown]
  - Pain in extremity [Unknown]
  - Tremor [Unknown]
  - Pain [Recovered/Resolved]
  - Pain [Unknown]
  - Angina pectoris [Unknown]

NARRATIVE: CASE EVENT DATE: 20120127
